FAERS Safety Report 17870650 (Version 3)
Quarter: 2020Q4

REPORT INFORMATION
  Report Type: Spontaneous
  Country: CN (occurrence: CN)
  Receive Date: 20200608
  Receipt Date: 20201111
  Transmission Date: 20210113
  Serious: Yes (Hospitalization)
  Sender: FDA-Public Use
  Company Number: CN-CELGENEUS-CHN-20191201556

PATIENT
  Age: 65 Year
  Sex: Male
  Weight: 55 kg

DRUGS (33)
  1. RECOMBINANT HUMAN GRANULOCYTE COLONY STIMULATING FACTOR [Concomitant]
     Active Substance: GRANULOCYTE COLONY-STIMULATING FACTOR NOS
     Dosage: 600 MICROGRAM
     Route: 030
     Dates: start: 20191205, end: 20191205
  2. SERPLULIMAB. [Suspect]
     Active Substance: SERPLULIMAB
     Route: 041
     Dates: start: 20191210
  3. SERPLULIMAB. [Suspect]
     Active Substance: SERPLULIMAB
     Route: 041
     Dates: start: 20200106, end: 20200106
  4. SHENG XUE BAO HE JI [Concomitant]
     Indication: ANAEMIA
     Dosage: 45 MILLILITER
     Route: 048
     Dates: start: 20191205, end: 20191206
  5. DI YU SHENG BAI PIAN [Concomitant]
     Indication: FEBRILE NEUTROPENIA
     Dosage: 4 TABLETS/TIME
     Route: 048
     Dates: start: 20191202
  6. APREPITANT. [Concomitant]
     Active Substance: APREPITANT
     Indication: COUGH
     Route: 048
     Dates: start: 20191119, end: 20191121
  7. CARBOPLATIN. [Suspect]
     Active Substance: CARBOPLATIN
     Indication: NON-SMALL CELL LUNG CANCER
     Dosage: 5AUC
     Route: 041
     Dates: start: 20191018, end: 20191119
  8. CARBOPLATIN. [Suspect]
     Active Substance: CARBOPLATIN
     Route: 041
     Dates: start: 20200106, end: 20200106
  9. SHENG XUE BAO HE JI [Concomitant]
     Dosage: 45 MILLILITER
     Route: 048
     Dates: start: 20191209
  10. RECOMBINANT HUMAN GRANULOCYTE COLONY STIMULATING FACTOR [Concomitant]
     Active Substance: GRANULOCYTE COLONY-STIMULATING FACTOR NOS
     Dosage: 300 MICROGRAM
     Route: 030
     Dates: start: 20191114, end: 20191115
  11. RECOMBINANT HUMAN GRANULOCYTE COLONY STIMULATING FACTOR [Concomitant]
     Active Substance: GRANULOCYTE COLONY-STIMULATING FACTOR NOS
     Route: 030
     Dates: start: 20191125, end: 20191125
  12. PANTOPRAZOLE SODIUM. [Concomitant]
     Active Substance: PANTOPRAZOLE SODIUM
     Route: 030
     Dates: start: 20191126, end: 20191126
  13. DEXAMETHASONE SODIUM PHOSPHATE. [Concomitant]
     Active Substance: DEXAMETHASONE SODIUM PHOSPHATE
     Indication: PROPHYLAXIS OF NAUSEA AND VOMITING
     Route: 041
     Dates: start: 20191119, end: 20191119
  14. SHENG XUE BAO HE JI [Concomitant]
     Dosage: 45 MILLILITER
     Route: 048
     Dates: start: 20191114
  15. RECOMBINANT HUMAN GRANULOCYTE COLONY STIMULATING FACTOR [Concomitant]
     Active Substance: GRANULOCYTE COLONY-STIMULATING FACTOR NOS
     Indication: WHITE BLOOD CELL COUNT DECREASED
     Dosage: 600 MICROGRAM
     Route: 030
     Dates: start: 20191203, end: 20191203
  16. RECOMBINANT HUMAN GRANULOCYTE COLONY STIMULATING FACTOR [Concomitant]
     Active Substance: GRANULOCYTE COLONY-STIMULATING FACTOR NOS
     Route: 030
     Dates: start: 20191206, end: 20191206
  17. SHENG XUE BAO HE JI [Concomitant]
     Dosage: 45 MILLILITER
     Route: 048
     Dates: start: 20191127
  18. RECOMBINANT HUMAN GRANULOCYTE COLONY STIMULATING FACTOR [Concomitant]
     Active Substance: GRANULOCYTE COLONY-STIMULATING FACTOR NOS
     Indication: NEUTROPHIL COUNT DECREASED
     Dosage: 600 MICROGRAM
     Route: 030
     Dates: start: 20191204, end: 20191204
  19. AMINO ACID [Concomitant]
     Active Substance: AMINO ACIDS, SOURCE UNSPECIFIED
     Indication: NUTRITIONAL SUPPLEMENTATION
     Route: 041
     Dates: start: 20191119, end: 20191119
  20. MEDROXYPROGESTERONE ACETATE. [Concomitant]
     Active Substance: MEDROXYPROGESTERONE ACETATE
     Indication: PRODUCT USED FOR UNKNOWN INDICATION
     Dosage: 1 TABLET
     Route: 048
     Dates: start: 20191120
  21. ABRAXANE [Suspect]
     Active Substance: PACLITAXEL
     Route: 041
     Dates: start: 20200106, end: 20200106
  22. DI YU SHENG BAI PIAN [Concomitant]
     Indication: WHITE BLOOD CELL COUNT DECREASED
     Dosage: 12 TABLET
     Route: 048
     Dates: start: 20191114
  23. TROPISETRON HYDROCHLORIDE [Concomitant]
     Active Substance: TROPISETRON HYDROCHLORIDE
     Indication: PROPHYLAXIS
     Dosage: 6 MILLIGRAM
     Route: 041
     Dates: start: 20191119, end: 20191120
  24. PANTOPRAZOLE SODIUM. [Concomitant]
     Active Substance: PANTOPRAZOLE SODIUM
     Indication: PROPHYLAXIS
     Dosage: 40 MILLIGRAM
     Route: 041
     Dates: start: 20191119, end: 20191120
  25. ABRAXANE [Suspect]
     Active Substance: PACLITAXEL
     Indication: NON-SMALL CELL LUNG CANCER
     Dosage: 100 MILLIGRAM/SQ. METER
     Route: 041
     Dates: start: 20191018, end: 20191126
  26. ABRAXANE [Suspect]
     Active Substance: PACLITAXEL
     Dosage: 75% OF PLANNED DOSE
     Route: 041
     Dates: start: 20191210
  27. SERPLULIMAB. [Suspect]
     Active Substance: SERPLULIMAB
     Dosage: 252 MILLIGRAM
     Route: 041
     Dates: start: 20191119, end: 20191119
  28. RECOMBINANT HUMAN GRANULOCYTE COLONY STIMULATING FACTOR [Concomitant]
     Active Substance: GRANULOCYTE COLONY-STIMULATING FACTOR NOS
     Dosage: 125 MICROGRAM
     Route: 030
     Dates: start: 20191112, end: 20191113
  29. TROPISETRON HYDROCHLORIDE [Concomitant]
     Active Substance: TROPISETRON HYDROCHLORIDE
     Indication: COUGH
     Route: 041
     Dates: start: 20191126, end: 20191126
  30. FUROSEMIDE. [Concomitant]
     Active Substance: FUROSEMIDE
     Indication: POLYURIA
     Route: 041
     Dates: start: 20191119, end: 20191119
  31. SERPLULIMAB. [Suspect]
     Active Substance: SERPLULIMAB
     Indication: NON-SMALL CELL LUNG CANCER
     Dosage: 4.5 MILLIGRAM/KILOGRAM
     Route: 041
     Dates: start: 20191018, end: 20191018
  32. CARBOPLATIN. [Suspect]
     Active Substance: CARBOPLATIN
     Dosage: 75% OF PLANNED DOSE
     Route: 041
     Dates: start: 20191210
  33. RECOMBINANT HUMAN GRANULOCYTE COLONY STIMULATING FACTOR [Concomitant]
     Active Substance: GRANULOCYTE COLONY-STIMULATING FACTOR NOS
     Indication: FEBRILE NEUTROPENIA
     Dosage: 600 MICROGRAM
     Route: 030
     Dates: start: 20191202, end: 20191202

REACTIONS (2)
  - White blood cell count decreased [Recovered/Resolved]
  - Febrile neutropenia [Recovered/Resolved]

NARRATIVE: CASE EVENT DATE: 20191202
